FAERS Safety Report 23648998 (Version 1)
Quarter: 2024Q1

REPORT INFORMATION
  Report Type: Spontaneous
  Country: MX (occurrence: None)
  Receive Date: 20240319
  Receipt Date: 20240319
  Transmission Date: 20240409
  Serious: Yes (Other)
  Sender: FDA-Public Use
  Company Number: 2024A064651

PATIENT
  Sex: Female
  Weight: 100 kg

DRUGS (2)
  1. XIGDUO XR [Suspect]
     Active Substance: DAPAGLIFLOZIN PROPANEDIOL\METFORMIN HYDROCHLORIDE
     Indication: Diabetes mellitus
     Dosage: XIGDUO XR 5/1000MG, ONE (TABLET) IS ADMINISTERED IN THE MORNING AND ONE IN THE EVENING
     Route: 048
     Dates: start: 2017
  2. INSULIN NOS [Concomitant]
     Active Substance: INSULIN NOS

REACTIONS (11)
  - Deafness transitory [Unknown]
  - Pain in extremity [Unknown]
  - Venous flow velocity decreased [Recovered/Resolved]
  - Vein discolouration [Recovered/Resolved]
  - Tremor [Unknown]
  - Hunger [Unknown]
  - Oesophageal pain [Unknown]
  - Insomnia [Unknown]
  - Feeling of despair [Unknown]
  - Fatigue [Unknown]
  - Product dose omission issue [Unknown]
